FAERS Safety Report 7033331-X (Version None)
Quarter: 2010Q4

REPORT INFORMATION
  Report Type: 
  Country: None (occurrence: None)
  Receive Date: 20101007
  Receipt Date: 20101005
  Transmission Date: 20110411
  Serious: Yes (Other)
  Sender: FDA-Public Use
  Company Number: US-BRISTOL-MYERS SQUIBB COMPANY-15318181

PATIENT
  Age: 16 Year
  Sex: Male

DRUGS (2)
  1. ABILIFY [Suspect]
  2. WELLBUTRIN [Suspect]
     Dosage: WELLBUTRIN XR

REACTIONS (3)
  - ATTENTION DEFICIT/HYPERACTIVITY DISORDER [None]
  - CONVULSION [None]
  - WEIGHT DECREASED [None]
